APPROVED DRUG PRODUCT: VIOXX
Active Ingredient: ROFECOXIB
Strength: 25MG/5ML
Dosage Form/Route: SUSPENSION;ORAL
Application: N021052 | Product #002
Applicant: MERCK RESEARCH LABORATORIES DIV MERCK CO INC
Approved: May 20, 1999 | RLD: No | RS: No | Type: DISCN